FAERS Safety Report 11417321 (Version 1)
Quarter: 2015Q3

REPORT INFORMATION
  Report Type: Report from Study
  Country: BR (occurrence: BR)
  Receive Date: 20150825
  Receipt Date: 20150825
  Transmission Date: 20151125
  Serious: Yes (Hospitalization)
  Sender: FDA-Public Use
  Company Number: BR-ABBVIE-15P-020-1450207-00

PATIENT
  Age: 11 Month
  Sex: Male
  Weight: 7.9 kg

DRUGS (3)
  1. SYNAGIS [Suspect]
     Active Substance: PALIVIZUMAB
     Indication: PREMATURE BABY
     Route: 030
     Dates: start: 20140605
  2. VIGABATRIN [Concomitant]
     Active Substance: VIGABATRIN
     Indication: EPILEPSY
  3. VALPROIC ACID. [Concomitant]
     Active Substance: VALPROIC ACID
     Indication: EPILEPSY

REACTIONS (10)
  - Increased bronchial secretion [Recovered/Resolved]
  - Fatigue [Recovering/Resolving]
  - Pneumonia [Recovered/Resolved]
  - Asthma [Recovered/Resolved]
  - Weight decreased [Unknown]
  - Pneumonia [Recovered/Resolved]
  - Pneumonia [Recovered/Resolved]
  - Cyanosis [Recovered/Resolved]
  - Pneumonia [Recovered/Resolved]
  - Bronchopulmonary dysplasia [Recovered/Resolved]

NARRATIVE: CASE EVENT DATE: 201501
